FAERS Safety Report 11327040 (Version 2)
Quarter: 2015Q4

REPORT INFORMATION
  Report Type: Report from Study
  Country: FR (occurrence: FR)
  Receive Date: 20150731
  Receipt Date: 20151008
  Transmission Date: 20160304
  Serious: Yes (Death, Life-Threatening, Hospitalization)
  Sender: FDA-Public Use
  Company Number: FR-ELI_LILLY_AND_COMPANY-FR201505007490

PATIENT
  Age: 52 Year
  Sex: Female
  Weight: 51 kg

DRUGS (13)
  1. PACLITAXEL. [Suspect]
     Active Substance: PACLITAXEL
     Indication: OESOPHAGEAL ADENOCARCINOMA
     Dosage: 80 MG/M2, UNKNOWN
     Route: 065
     Dates: start: 20150409
  2. DEXAMETHASONE. [Concomitant]
     Active Substance: DEXAMETHASONE
     Dosage: UNK
  3. PRIMPERAN [Concomitant]
     Active Substance: METOCLOPRAMIDE HYDROCHLORIDE
     Dosage: 30 MG, QD
  4. ONDANSETRON [Concomitant]
     Active Substance: ONDANSETRON
     Dosage: 8 MG, UNK
     Dates: start: 20150409, end: 20150518
  5. METHYLPREDNISOLONE. [Concomitant]
     Active Substance: METHYLPREDNISOLONE
     Dosage: 120 MG, UNK
     Dates: start: 20150409, end: 20150518
  6. RANITIDINE [Concomitant]
     Active Substance: RANITIDINE\RANITIDINE HYDROCHLORIDE
     Dosage: 50 MG, UNK
     Dates: start: 20150409, end: 20150518
  7. POLARAMINE [Concomitant]
     Active Substance: DEXCHLORPHENIRAMINE MALEATE
     Dosage: 5 MG, UNK
     Dates: start: 20150409, end: 20150518
  8. CYRAMZA [Suspect]
     Active Substance: RAMUCIRUMAB
     Indication: OESOPHAGEAL ADENOCARCINOMA
     Dosage: 8 MG/KG, UNKNOWN
     Route: 065
     Dates: start: 20150409, end: 20150511
  9. MORPHINE [Concomitant]
     Active Substance: MORPHINE
     Dosage: 200 MG/24H
  10. ANAFRANIL [Concomitant]
     Active Substance: CLOMIPRAMINE HYDROCHLORIDE
     Dosage: 25 MG, UNK
  11. GAVISCON                           /00237601/ [Concomitant]
     Active Substance: ALUMINUM HYDROXIDE\MAGNESIUM CARBONATE
  12. LOXEN                              /00639802/ [Concomitant]
     Active Substance: NICARDIPINE
     Dosage: 50 MG, QD
  13. ESOMEPRAZOLE [Concomitant]
     Active Substance: ESOMEPRAZOLE
     Dosage: 40 MG, QD

REACTIONS (5)
  - Nausea [Unknown]
  - Peritonitis [Fatal]
  - Vomiting [Unknown]
  - Blood pressure systolic increased [Unknown]
  - Gastrointestinal perforation [Fatal]

NARRATIVE: CASE EVENT DATE: 20150511
